FAERS Safety Report 4524615-5 (Version None)
Quarter: 2005Q1

REPORT INFORMATION
  Report Type: 
  Country: None (occurrence: None)
  Receive Date: 20041117
  Receipt Date: 20040817
  Transmission Date: 20050727
  Serious: Yes (Disabling)
  Sender: FDA-Public Use
  Company Number: NSADSS2001008899

PATIENT
  Age: 16 Year
  Sex: Female

DRUGS (1)
  1. LEVAQUIN [Suspect]
     Indication: BACTERIAL INFECTION
     Dosage: 500 MG, ORAL
     Route: 048

REACTIONS (7)
  - ASTHENIA [None]
  - DEPRESSION [None]
  - IRRITABILITY [None]
  - PHOTOSENSITIVITY REACTION [None]
  - RASH [None]
  - TENDON DISORDER [None]
  - TREMOR [None]
